FAERS Safety Report 25377094 (Version 3)
Quarter: 2025Q4

REPORT INFORMATION
  Report Type: Spontaneous
  Country: RU (occurrence: RU)
  Receive Date: 20250530
  Receipt Date: 20251219
  Transmission Date: 20260118
  Serious: Yes (Other)
  Sender: RANBAXY
  Company Number: RU-SUN PHARMACEUTICAL INDUSTRIES LTD-2025R1-508850

PATIENT
  Age: 47 Year
  Sex: Female

DRUGS (1)
  1. OXALIPLATIN [Suspect]
     Active Substance: OXALIPLATIN
     Indication: Adenocarcinoma pancreas
     Dosage: DOSE OF 85 MG/M2, IN FACT - 135 MG INTRAVENOUSLY OVER 2 HOURS
     Route: 042

REACTIONS (3)
  - Neurotoxicity [Recovered/Resolved]
  - Cerebrovascular accident [Recovered/Resolved]
  - Neuropathy peripheral [Recovered/Resolved]
